FAERS Safety Report 6368602-3 (Version None)
Quarter: 2009Q3

REPORT INFORMATION
  Report Type: 
  Country: None (occurrence: None)
  Receive Date: 20090922
  Receipt Date: 20090917
  Transmission Date: 20100115
  Serious: Yes (Other)
  Sender: FDA-Public Use
  Company Number: JP-JNJFOC-20080702268

PATIENT
  Age: 62 Year
  Sex: Female

DRUGS (6)
  1. DUROTEP [Suspect]
     Indication: CANCER PAIN
     Route: 062
  2. ARTANE [Interacting]
     Indication: DRUG USE FOR UNKNOWN INDICATION
     Route: 048
  3. OXYCODONE HCL [Concomitant]
     Route: 048
  4. CONTOL [Concomitant]
     Route: 048
  5. SERMION [Concomitant]
     Route: 048
  6. HYPEN [Concomitant]
     Route: 048

REACTIONS (2)
  - DELIRIUM [None]
  - DRUG INTERACTION [None]
